FAERS Safety Report 6283946-1 (Version None)
Quarter: 2009Q3

REPORT INFORMATION
  Report Type: 
  Country: None (occurrence: None)
  Receive Date: 20090723
  Receipt Date: 20090723
  Transmission Date: 20100115
  Serious: Yes (Other)
  Sender: FDA-Public Use
  Company Number: None

PATIENT
  Sex: Male

DRUGS (2)
  1. ZICAM COLD REMEDY NASAL GEL [Suspect]
     Indication: DYSPNOEA
     Dosage: 2-3 TIMES A DAY FOR 2-3 DAYS NASAL
     Route: 045
  2. ZICAM COLD REMEDY NASAL GEL [Suspect]
     Indication: MALAISE
     Dosage: 2-3 TIMES A DAY FOR 2-3 DAYS NASAL
     Route: 045

REACTIONS (1)
  - ANOSMIA [None]
